FAERS Safety Report 5882505-X (Version None)
Quarter: 2008Q3

REPORT INFORMATION
  Report Type: 
  Country: None (occurrence: None)
  Receive Date: 20080913
  Receipt Date: 20080806
  Transmission Date: 20090109
  Serious: No
  Sender: FDA-Public Use
  Company Number: US-ABBOTT-08P-163-0469055-00

PATIENT
  Sex: Female

DRUGS (2)
  1. HUMIRA [Suspect]
     Indication: CROHN'S DISEASE
     Dates: start: 20080805, end: 20080805
  2. HUMIRA [Suspect]

REACTIONS (3)
  - DISCOMFORT [None]
  - HEADACHE [None]
  - NAUSEA [None]
